FAERS Safety Report 5427357-7 (Version None)
Quarter: 2007Q3

REPORT INFORMATION
  Report Type: 
  Country: None (occurrence: None)
  Receive Date: 20070828
  Receipt Date: 20070813
  Transmission Date: 20080115
  Serious: Yes (Other)
  Sender: FDA-Public Use
  Company Number: US-AVENTIS-200716016US

PATIENT
  Age: 64 Year
  Sex: Female

DRUGS (3)
  1. FEXOFENADINE HYDROCHLORIDE [Suspect]
     Route: 048
     Dates: start: 20070624, end: 20070807
  2. HERBAL PREPARATION [Suspect]
     Dosage: DOSE: UNK
     Dates: end: 20070713
  3. ACIPHEX [Concomitant]
     Dosage: DOSE: UNK

REACTIONS (2)
  - NERVOUSNESS [None]
  - PANIC ATTACK [None]
